FAERS Safety Report 8921319 (Version 2)
Quarter: 2012Q4

REPORT INFORMATION
  Report Type: 
  Country: US (occurrence: US)
  Receive Date: 20121121
  Receipt Date: 20121219
  Transmission Date: 20130627
  Serious: Yes (Other)
  Sender: FDA-Public Use
  Company Number: US-PURDUE-USA-2012-0096060

PATIENT
  Age: 40 Year
  Sex: Male

DRUGS (2)
  1. OXYCONTIN (NDA 22-272) [Suspect]
     Indication: CANCER PAIN
     Dosage: 80 mg, five times daily
     Route: 048
  2. OXYCODONE HCL IMMEDIATE RELEASE (91-490) [Concomitant]
     Indication: BREAKTHROUGH PAIN
     Dosage: 15 mg, tid
     Route: 048

REACTIONS (4)
  - Gastrointestinal obstruction [Unknown]
  - Activities of daily living impaired [Unknown]
  - Foreign body [Not Recovered/Not Resolved]
  - Drug effect decreased [Not Recovered/Not Resolved]
